FAERS Safety Report 16209649 (Version 2)
Quarter: 2019Q2

REPORT INFORMATION
  Report Type: Spontaneous
  Country: US (occurrence: US)
  Receive Date: 20190417
  Receipt Date: 20190628
  Transmission Date: 20190711
  Serious: Yes (Other)
  Sender: FDA-Public Use
  Company Number: US-ASTRAZENECA-2019SE54479

PATIENT
  Age: 18822 Day
  Sex: Female

DRUGS (25)
  1. KOMBIGLYZE XR [Suspect]
     Active Substance: METFORMIN HYDROCHLORIDE\SAXAGLIPTIN HYDROCHLORIDE
     Indication: TYPE 2 DIABETES MELLITUS
     Dosage: 5MG-1000MG
     Route: 048
     Dates: start: 20170301, end: 20171229
  2. BETAMETHASONE. [Concomitant]
     Active Substance: BETAMETHASONE
  3. RAMIPRIL. [Concomitant]
     Active Substance: RAMIPRIL
  4. ALLOPURINOL. [Concomitant]
     Active Substance: ALLOPURINOL
  5. LEVOFLOXACIN. [Concomitant]
     Active Substance: LEVOFLOXACIN
  6. NITROFURANTOIN. [Concomitant]
     Active Substance: NITROFURANTOIN
  7. CLARITIN [Concomitant]
     Active Substance: LORATADINE
  8. MELOXICAM. [Concomitant]
     Active Substance: MELOXICAM
  9. ONGLYZA [Suspect]
     Active Substance: SAXAGLIPTIN HYDROCHLORIDE
     Indication: TYPE 2 DIABETES MELLITUS
     Route: 048
     Dates: start: 20091001
  10. AMOX TR-K [Concomitant]
     Route: 048
  11. CIPROFLOXACIN. [Concomitant]
     Active Substance: CIPROFLOXACIN
  12. VYTORIN [Concomitant]
     Active Substance: EZETIMIBE\SIMVASTATIN
  13. AZITHROMYCIN ANHYDROUS. [Concomitant]
     Active Substance: AZITHROMYCIN ANHYDROUS
  14. DICYCLOMINE [Concomitant]
     Active Substance: DICYCLOMINE HYDROCHLORIDE
  15. CYANOCOBALAMIN. [Concomitant]
     Active Substance: CYANOCOBALAMIN
  16. ONGLYZA [Suspect]
     Active Substance: SAXAGLIPTIN HYDROCHLORIDE
     Indication: TYPE 2 DIABETES MELLITUS
     Dosage: 5.0MG UNKNOWN
     Route: 048
     Dates: start: 20091001, end: 20130722
  17. FUROSEMIDE. [Concomitant]
     Active Substance: FUROSEMIDE
  18. TRAMADOL. [Concomitant]
     Active Substance: TRAMADOL
  19. SULFAMETHOXAZOLE [Concomitant]
     Active Substance: SULFAMETHOXAZOLE
  20. SIMVASTATIN. [Concomitant]
     Active Substance: SIMVASTATIN
  21. PREDNISONE. [Concomitant]
     Active Substance: PREDNISONE
  22. METHYLPREDNISOLONE. [Concomitant]
     Active Substance: METHYLPREDNISOLONE
  23. INDOMETHACIN. [Concomitant]
     Active Substance: INDOMETHACIN
  24. GABAPENTIN. [Concomitant]
     Active Substance: GABAPENTIN
  25. FEXOFENADINE [Concomitant]
     Active Substance: FEXOFENADINE\FEXOFENADINE HYDROCHLORIDE

REACTIONS (3)
  - Cardiac failure [Unknown]
  - Cardiac failure congestive [Unknown]
  - Myocardial infarction [Unknown]

NARRATIVE: CASE EVENT DATE: 20110407
